FAERS Safety Report 8562530-0 (Version None)
Quarter: 2012Q3

REPORT INFORMATION
  Report Type: 
  Country: None (occurrence: None)
  Receive Date: 20120802
  Receipt Date: 20120727
  Transmission Date: 20120928
  Serious: Yes (Death)
  Sender: FDA-Public Use
  Company Number: US-BAXTER-2012BAX011996

PATIENT
  Sex: Female

DRUGS (2)
  1. DIANEAL [Suspect]
     Indication: PERITONEAL DIALYSIS
     Route: 033
     Dates: start: 20120710, end: 20120713
  2. DIANEAL [Suspect]
     Route: 033
     Dates: start: 20120710, end: 20120713

REACTIONS (2)
  - CARDIAC DISORDER [None]
  - ABDOMINAL DISTENSION [None]
